FAERS Safety Report 20321240 (Version 1)
Quarter: 2022Q1

REPORT INFORMATION
  Report Type: Spontaneous
  Country: NL (occurrence: NL)
  Receive Date: 20220111
  Receipt Date: 20220111
  Transmission Date: 20220423
  Serious: Yes (Death, Life-Threatening, Other)
  Sender: FDA-Public Use
  Company Number: NL-AMGEN-NLDSP2022000473

PATIENT

DRUGS (1)
  1. BLINATUMOMAB [Suspect]
     Active Substance: BLINATUMOMAB
     Indication: Acute lymphocytic leukaemia
     Dosage: 15 MICROGRAM PER METER SQAURE, QD
     Route: 065

REACTIONS (8)
  - Acute lymphocytic leukaemia recurrent [Unknown]
  - Gamma-glutamyltransferase increased [Unknown]
  - Anaemia [Unknown]
  - Infection [Unknown]
  - Febrile neutropenia [Unknown]
  - Tracheal haemorrhage [Fatal]
  - Adverse event [Unknown]
  - Pyrexia [Unknown]
